FAERS Safety Report 9415695 (Version 3)
Quarter: 2014Q1

REPORT INFORMATION
  Report Type: Spontaneous
  Country: US (occurrence: US)
  Receive Date: 20130723
  Receipt Date: 20140310
  Transmission Date: 20141002
  Serious: Yes (Hospitalization)
  Sender: FDA-Public Use
  Company Number: US-B.I. PHARMACEUTICALS,INC./RIDGEFIELD-2013-BI-21319BP

PATIENT
  Age: 52 Year
  Sex: Male
  Weight: 175.36 kg

DRUGS (6)
  1. PRADAXA [Suspect]
     Indication: PRODUCT USED FOR UNKNOWN INDICATION
     Route: 065
     Dates: start: 201205, end: 20120720
  2. LOW DOSE ASPIRIN [Concomitant]
     Route: 065
  3. LASIX [Concomitant]
     Route: 065
     Dates: start: 2012
  4. ZAROXOLYN [Concomitant]
     Route: 065
  5. NITROSTAT [Concomitant]
     Route: 065
     Dates: start: 2012
  6. MECLIZINE [Concomitant]
     Route: 065
     Dates: start: 2012

REACTIONS (3)
  - Gastrointestinal haemorrhage [Unknown]
  - Haemorrhagic anaemia [Unknown]
  - Renal failure acute [Unknown]
